FAERS Safety Report 25752273 (Version 2)
Quarter: 2025Q4

REPORT INFORMATION
  Report Type: Spontaneous
  Country: EU (occurrence: EU)
  Receive Date: 20250902
  Receipt Date: 20251022
  Transmission Date: 20260118
  Serious: Yes (Other)
  Sender: BEIGENE
  Company Number: None

PATIENT
  Age: 55 Year
  Weight: 64 kg

DRUGS (1)
  1. BRUKINSA [Suspect]
     Active Substance: ZANUBRUTINIB
     Indication: Lymphoma
     Dosage: 4 DOSAGE FORM, QD

REACTIONS (4)
  - Lacrimal gland enlargement [Recovered/Resolved]
  - Cyst [Recovered/Resolved]
  - Conjunctival haemorrhage [Recovered/Resolved]
  - Swelling [Recovering/Resolving]
